FAERS Safety Report 21608287 (Version 1)
Quarter: 2022Q4

REPORT INFORMATION
  Report Type: Spontaneous
  Country: US (occurrence: US)
  Receive Date: 20221117
  Receipt Date: 20221117
  Transmission Date: 20230113
  Serious: No
  Sender: FDA-Public Use
  Company Number: US-VIIV HEALTHCARE LIMITED-US2022AMR162234

PATIENT
  Age: 57 Year
  Sex: Female

DRUGS (5)
  1. RILPIVIRINE [Suspect]
     Active Substance: RILPIVIRINE
     Indication: Antiviral treatment
     Dosage: UNK 600/900 MG EVERY 2 MONTHS
     Route: 030
     Dates: start: 20221006
  2. CABOTEGRAVIR [Suspect]
     Active Substance: CABOTEGRAVIR
     Indication: Antiviral treatment
     Dosage: UNK 600/900 MG EVERY 2 MONTHS
     Route: 030
     Dates: start: 20221006
  3. TRIUMEQ [Concomitant]
     Active Substance: ABACAVIR SULFATE\DOLUTEGRAVIR SODIUM\LAMIVUDINE
     Indication: Antiviral treatment
     Dosage: UNK UNK, QD
     Route: 065
  4. VOCABRIA [CABOTEGRAVIR SODIUM] [Concomitant]
     Indication: Psychotherapy
     Dosage: UNK
     Route: 048
     Dates: start: 20220908
  5. EDURANT [Concomitant]
     Active Substance: RILPIVIRINE HYDROCHLORIDE
     Indication: Antiviral treatment
     Dosage: UNK
     Route: 048
     Dates: start: 20220908

REACTIONS (1)
  - Rash pruritic [Recovering/Resolving]

NARRATIVE: CASE EVENT DATE: 20221102
